FAERS Safety Report 11200112 (Version 1)
Quarter: 2015Q2

REPORT INFORMATION
  Report Type: Spontaneous
  Country: JP (occurrence: JP)
  Receive Date: 20150618
  Receipt Date: 20150618
  Transmission Date: 20150821
  Serious: Yes (Other)
  Sender: FDA-Public Use
  Company Number: JP-SA-2014SA023261

PATIENT
  Age: 59 Year
  Sex: Male

DRUGS (2)
  1. CLOPIDOGREL BISULFATE. [Suspect]
     Active Substance: CLOPIDOGREL BISULFATE
     Indication: ANTIPLATELET THERAPY
     Route: 065
  2. ASPIRIN. [Suspect]
     Active Substance: ASPIRIN
     Route: 065

REACTIONS (4)
  - Gastrointestinal ulcer haemorrhage [Recovering/Resolving]
  - Anaemia [Recovering/Resolving]
  - Ileal ulcer [Recovering/Resolving]
  - Melaena [Recovering/Resolving]
